FAERS Safety Report 11124931 (Version 2)
Quarter: 2015Q2

REPORT INFORMATION
  Report Type: Spontaneous
  Country: US (occurrence: US)
  Receive Date: 20150520
  Receipt Date: 20150604
  Transmission Date: 20150821
  Serious: Yes (Other)
  Sender: FDA-Public Use
  Company Number: US-PFIZER INC-2015167422

PATIENT
  Age: 77 Year
  Sex: Female
  Weight: 73 kg

DRUGS (2)
  1. LETROZOLE. [Suspect]
     Active Substance: LETROZOLE
     Indication: BREAST CANCER
     Dosage: UNK
     Dates: start: 20150422, end: 20150520
  2. IBRANCE [Suspect]
     Active Substance: PALBOCICLIB
     Indication: BREAST CANCER
     Dosage: 125 MG, DAILY (FOR 21 DAYS)
     Route: 048
     Dates: start: 20150422, end: 20150520

REACTIONS (4)
  - White blood cell count decreased [Unknown]
  - Cancer pain [Unknown]
  - Nausea [Recovering/Resolving]
  - Anaemia [Unknown]

NARRATIVE: CASE EVENT DATE: 20150520
